FAERS Safety Report 17561194 (Version 2)
Quarter: 2020Q2

REPORT INFORMATION
  Report Type: Spontaneous
  Country: FI (occurrence: FI)
  Receive Date: 20200319
  Receipt Date: 20200417
  Transmission Date: 20200713
  Serious: Yes (Other)
  Sender: FDA-Public Use
  Company Number: FI-JNJFOC-20200315411

PATIENT
  Sex: Female

DRUGS (11)
  1. PANACOD [Concomitant]
     Active Substance: ACETAMINOPHEN\CODEINE PHOSPHATE
     Dosage: WHEN NEEDED
  2. IMUREL                             /00001501/ [Concomitant]
     Active Substance: AZATHIOPRINE SODIUM
  3. ESOMEPRAZOLE. [Concomitant]
     Active Substance: ESOMEPRAZOLE MAGNESIUM
     Dosage: WHEN NEEDED
  4. ENTOCORT [Concomitant]
     Active Substance: BUDESONIDE
     Dosage: WHEN NEEDED
  5. SIMPONI [Suspect]
     Active Substance: GOLIMUMAB
     Indication: PSORIATIC ARTHROPATHY
     Route: 058
     Dates: start: 20171009, end: 20200305
  6. DESLORATADINE. [Concomitant]
     Active Substance: DESLORATADINE
     Dosage: WHEN NEEDED
  7. BURANA [Concomitant]
     Active Substance: IBUPROFEN
     Dosage: WHEN NEEDED
  8. VENTOLINE                          /00139501/ [Concomitant]
     Active Substance: ALBUTEROL
     Dosage: WHEN NEEDED
  9. PENTASA [Concomitant]
     Active Substance: MESALAMINE
  10. BEROCCA                            /00302401/ [Concomitant]
  11. PANADOL [Concomitant]
     Active Substance: ACETAMINOPHEN
     Dosage: WHEN NEEDED

REACTIONS (2)
  - Adenocarcinoma [Unknown]
  - Helicobacter gastritis [Unknown]

NARRATIVE: CASE EVENT DATE: 20200303
